FAERS Safety Report 6772490-0 (Version None)
Quarter: 2010Q2

REPORT INFORMATION
  Report Type: 
  Country: None (occurrence: None)
  Receive Date: 20100616
  Receipt Date: 20100304
  Transmission Date: 20101027
  Serious: No
  Sender: FDA-Public Use
  Company Number: US-ASTRAZENECA-2010SE09508

PATIENT
  Sex: Male

DRUGS (7)
  1. PULMICORT FLEXHALER [Suspect]
     Indication: ASTHMA
     Dosage: 180 MCG BID
     Route: 055
     Dates: start: 20100204
  2. AMBIEN [Concomitant]
     Indication: SLEEP DISORDER
  3. PRAVASTATIN [Concomitant]
     Indication: BLOOD CHOLESTEROL
  4. BENAZEPRIL HYDROCHLORIDE [Concomitant]
  5. AMLODIPINE [Concomitant]
  6. METHYLDOPA [Concomitant]
  7. INDAPAMIDE [Concomitant]

REACTIONS (3)
  - DECREASED APPETITE [None]
  - DYSGEUSIA [None]
  - WEIGHT DECREASED [None]
